FAERS Safety Report 19384627 (Version 2)
Quarter: 2022Q3

REPORT INFORMATION
  Report Type: Report from Study
  Country: CA (occurrence: CA)
  Receive Date: 20210607
  Receipt Date: 20220725
  Transmission Date: 20221027
  Serious: Yes (Hospitalization)
  Sender: FDA-Public Use
  Company Number: CA-OTSUKA-2021_019057

PATIENT
  Sex: Male

DRUGS (1)
  1. ARIPIPRAZOLE [Suspect]
     Active Substance: ARIPIPRAZOLE
     Indication: Product used for unknown indication
     Dosage: 400 MG, Q 3 WEEKS
     Route: 030

REACTIONS (6)
  - Intrusive thoughts [Unknown]
  - Fatigue [Unknown]
  - Impatience [Not Recovered/Not Resolved]
  - Aggression [Unknown]
  - Irritability [Not Recovered/Not Resolved]
  - Economic problem [Unknown]
